FAERS Safety Report 20106344 (Version 2)
Quarter: 2021Q4

REPORT INFORMATION
  Report Type: Spontaneous
  Country: DE (occurrence: DE)
  Receive Date: 20211124
  Receipt Date: 20211209
  Transmission Date: 20220303
  Serious: Yes (Hospitalization)
  Sender: FDA-Public Use
  Company Number: DE-TEVA-2021-DE-1980092

PATIENT
  Age: 72 Year
  Sex: Male

DRUGS (4)
  1. METHOTREXATE [Suspect]
     Active Substance: METHOTREXATE
     Indication: Rheumatoid arthritis
     Route: 058
     Dates: end: 202011
  2. ETANERCEPT [Suspect]
     Active Substance: ETANERCEPT
     Indication: Rheumatoid arthritis
     Route: 058
     Dates: end: 202103
  3. PREDNISOLONE [Suspect]
     Active Substance: PREDNISOLONE
     Indication: Felty^s syndrome
     Dosage: 3 MILLIGRAM DAILY;
     Route: 048
     Dates: start: 202104
  4. PREDNISOLONE [Suspect]
     Active Substance: PREDNISOLONE
     Dosage: 80 MILLIGRAM DAILY;
     Route: 048
     Dates: start: 2021

REACTIONS (1)
  - Visceral leishmaniasis [Recovering/Resolving]

NARRATIVE: CASE EVENT DATE: 20210101
